FAERS Safety Report 6390019-6 (Version None)
Quarter: 2009Q4

REPORT INFORMATION
  Report Type: 
  Country: None (occurrence: None)
  Receive Date: 20091006
  Receipt Date: 20090925
  Transmission Date: 20100525
  Serious: Yes (Other)
  Sender: FDA-Public Use
  Company Number: PHEH2009US12011

PATIENT
  Sex: Female

DRUGS (1)
  1. MIACALCIN [Suspect]
     Dosage: UNK, UNK
     Dates: end: 20090101

REACTIONS (3)
  - CONDITION AGGRAVATED [None]
  - DEAFNESS NEUROSENSORY [None]
  - DRUG INEFFECTIVE [None]
